FAERS Safety Report 4449816-6 (Version None)
Quarter: 2004Q3

REPORT INFORMATION
  Report Type: 
  Country: None (occurrence: None)
  Receive Date: 20040802
  Receipt Date: 20030721
  Transmission Date: 20050211
  Serious: Yes (Other)
  Sender: FDA-Public Use
  Company Number: US-SHR-03-010227

PATIENT
  Age: 73 Year
  Sex: Female
  Weight: 113.4 kg

DRUGS (2)
  1. MAGNEVIST [Suspect]
     Indication: NUCLEAR MAGNETIC RESONANCE IMAGING BRAIN
     Dosage: 20 ML 1 DOSE, INTRAVENOUS
     Route: 042
     Dates: start: 20030624, end: 20030624
  2. ATIVAN [Concomitant]

REACTIONS (3)
  - HEART RATE DECREASED [None]
  - HYPERSENSITIVITY [None]
  - URTICARIA [None]
